FAERS Safety Report 7334145-3 (Version None)
Quarter: 2011Q1

REPORT INFORMATION
  Report Type: 
  Country: None (occurrence: None)
  Receive Date: 20110307
  Receipt Date: 20110222
  Transmission Date: 20110831
  Serious: Yes (Other)
  Sender: FDA-Public Use
  Company Number: US-JNJFOC-20110300952

PATIENT
  Age: 35 Year
  Sex: Female

DRUGS (5)
  1. RITUXIMAB [Suspect]
     Indication: BURKITT'S LYMPHOMA
     Route: 065
  2. CYCLOPHOSPHAMIDE [Suspect]
     Indication: BURKITT'S LYMPHOMA
     Route: 065
  3. PREDNISONE [Suspect]
     Indication: BURKITT'S LYMPHOMA
     Route: 065
  4. VINCRISTINE [Suspect]
     Indication: BURKITT'S LYMPHOMA
     Route: 065
  5. DOXORUBICIN HCL [Suspect]
     Indication: BURKITT'S LYMPHOMA
     Route: 042

REACTIONS (2)
  - PROLONGED PREGNANCY [None]
  - DRUG EXPOSURE DURING PREGNANCY [None]
